FAERS Safety Report 9840689 (Version 1)
Quarter: 2013Q4

REPORT INFORMATION
  Report Type: Spontaneous
  Country: US (occurrence: None)
  Receive Date: 20131211
  Receipt Date: 20131211
  Transmission Date: 20140711
  Serious: Yes (Other)
  Sender: FDA-Public Use
  Company Number: SPV1-2011-00291

PATIENT
  Sex: Male

DRUGS (5)
  1. VPRIV [Suspect]
     Indication: GAUCHER^S DISEASE
     Dosage: 60 UG/KG, 1X/2WKS,IV DRIP
     Route: 041
     Dates: start: 20091217
  2. VERAPAMIL(VERAPAMIL) [Concomitant]
  3. ALBUTEROL SALBUTAMOL [Concomitant]
  4. CONCERTA (METHYLPHENIDATE HYDROCHLORIDE) [Concomitant]
  5. LEVOTHYROXINE(LEVOTHYROXINE) [Concomitant]

REACTIONS (4)
  - Pyrexia [None]
  - Headache [None]
  - Abdominal pain upper [None]
  - Infusion related reaction [None]
